FAERS Safety Report 20393705 (Version 3)
Quarter: 2022Q1

REPORT INFORMATION
  Report Type: Spontaneous
  Country: DE (occurrence: DE)
  Receive Date: 20220128
  Receipt Date: 20220301
  Transmission Date: 20220423
  Serious: Yes (Other)
  Sender: FDA-Public Use
  Company Number: DE-SA-SAC20220127000366

PATIENT

DRUGS (1)
  1. LIBTAYO [Suspect]
     Active Substance: CEMIPLIMAB-RWLC
     Indication: Product used for unknown indication
     Dosage: 350 MG
     Route: 042
     Dates: start: 20210330

REACTIONS (11)
  - Atrial fibrillation [Unknown]
  - Squamous cell carcinoma of head and neck [Unknown]
  - Cytokine release syndrome [Unknown]
  - Chills [Unknown]
  - Body temperature increased [Unknown]
  - Troponin increased [Unknown]
  - Hypertension [Unknown]
  - Malaise [Unknown]
  - Discomfort [Unknown]
  - Skin lesion [Unknown]
  - Cardiac pacemaker insertion [Unknown]
